FAERS Safety Report 10249167 (Version 1)
Quarter: 2014Q2

REPORT INFORMATION
  Report Type: Spontaneous
  Country: US (occurrence: None)
  Receive Date: 20140618
  Receipt Date: 20140618
  Transmission Date: 20141212
  Serious: Yes (Life-Threatening)
  Sender: FDA-Public Use
  Company Number: None

PATIENT
  Age: 1 Month
  Sex: Female
  Weight: 63.5 kg

DRUGS (4)
  1. METHOTREXATE 2.5MG TABLETS [Suspect]
     Indication: RHEUMATOID ARTHRITIS
     Dosage: 1 TABLET FIVE TIMES WEEKLY ORAL
     Route: 048
     Dates: start: 20100101, end: 20140531
  2. ASPIRIN 81MG DAILY [Concomitant]
  3. FOLIC ACID 1MG DAILY [Concomitant]
  4. LEVOTHYROXINE 175MCG DAILY [Concomitant]

REACTIONS (1)
  - Diffuse large B-cell lymphoma [None]
